FAERS Safety Report 5189926-1 (Version None)
Quarter: 2006Q4

REPORT INFORMATION
  Report Type: 
  Country: None (occurrence: None)
  Receive Date: 20061218
  Receipt Date: 20061204
  Transmission Date: 20070319
  Serious: Yes (Life-Threatening)
  Sender: FDA-Public Use
  Company Number: GXKR2006GB07895

PATIENT
  Age: 55 Year
  Sex: Female

DRUGS (4)
  1. AMOXICILLIN [Suspect]
     Indication: URINARY TRACT INFECTION
     Dosage: 500 MG, ORAL
     Route: 048
     Dates: start: 20061103, end: 20061103
  2. ATENOLOL [Concomitant]
  3. ATORVASTATIN CALCIUM [Concomitant]
  4. GTN (GLYCERYL TRINITRATE) [Concomitant]

REACTIONS (1)
  - OBSTRUCTIVE AIRWAYS DISORDER [None]
